FAERS Safety Report 10263885 (Version 1)
Quarter: 2014Q2

REPORT INFORMATION
  Report Type: Spontaneous
  Country: US (occurrence: US)
  Receive Date: 20140627
  Receipt Date: 20140627
  Transmission Date: 20141212
  Serious: No
  Sender: FDA-Public Use
  Company Number: US-ASTRAZENECA-2014SE46824

PATIENT
  Age: 55 Year
  Sex: Female
  Weight: 81.2 kg

DRUGS (1)
  1. NEXIUM 24HR [Suspect]
     Indication: GASTROOESOPHAGEAL REFLUX DISEASE
     Route: 048
     Dates: start: 20140612, end: 201406

REACTIONS (2)
  - Nausea [Unknown]
  - Intentional product misuse [Unknown]
